FAERS Safety Report 7002928-5 (Version None)
Quarter: 2010Q3

REPORT INFORMATION
  Report Type: 
  Country: None (occurrence: None)
  Receive Date: 20100916
  Receipt Date: 20100831
  Transmission Date: 20110219
  Serious: Yes (Other)
  Sender: FDA-Public Use
  Company Number: 2010P1001081

PATIENT
  Sex: Male

DRUGS (2)
  1. WARFARIN SODIUM [Suspect]
     Indication: AORTIC VALVE REPLACEMENT
     Dosage: 5 MG;QD;PO
     Route: 048
     Dates: start: 19890101
  2. WARFARIN SODIUM [Suspect]
     Dosage: 1 MG QD ON MON, FRI, PO
     Route: 048
     Dates: start: 19890101

REACTIONS (3)
  - HAEMORRHAGE [None]
  - INTERNATIONAL NORMALISED RATIO INCREASED [None]
  - OEDEMA PERIPHERAL [None]
